FAERS Safety Report 18915146 (Version 1)
Quarter: 2021Q1

REPORT INFORMATION
  Report Type: Spontaneous
  Country: CA (occurrence: CA)
  Receive Date: 20210219
  Receipt Date: 20210219
  Transmission Date: 20210420
  Serious: Yes (Other)
  Sender: FDA-Public Use
  Company Number: CA-ORION CORPORATION ORION PHARMA-21_00013228

PATIENT
  Age: 38 Year
  Sex: Male

DRUGS (10)
  1. DICLOFENAC [Concomitant]
     Active Substance: DICLOFENAC
     Route: 048
  2. DILAUDID [Concomitant]
     Active Substance: HYDROMORPHONE HYDROCHLORIDE
     Route: 048
  3. XELJANZ XR [Suspect]
     Active Substance: TOFACITINIB CITRATE
     Indication: PRODUCT USED FOR UNKNOWN INDICATION
     Route: 048
  4. BACLOFEN. [Concomitant]
     Active Substance: BACLOFEN
     Route: 048
  5. LEFLUNOMIDE. [Concomitant]
     Active Substance: LEFLUNOMIDE
     Route: 048
  6. METHYLPREDNISOLONE. [Concomitant]
     Active Substance: METHYLPREDNISOLONE
     Route: 042
  7. PREDNISONE. [Concomitant]
     Active Substance: PREDNISONE
     Route: 048
  8. METHOTREXATE (TRADE NAME UNKNOWN) [Suspect]
     Active Substance: METHOTREXATE
     Indication: PRODUCT USED FOR UNKNOWN INDICATION
     Route: 065
  9. SULFASALAZINE. [Concomitant]
     Active Substance: SULFASALAZINE
     Route: 048
  10. HUMIRA [Suspect]
     Active Substance: ADALIMUMAB
     Indication: PRODUCT USED FOR UNKNOWN INDICATION
     Route: 058

REACTIONS (15)
  - Chills [Unknown]
  - Pyrexia [Unknown]
  - Urticaria [Unknown]
  - Dyspnoea [Unknown]
  - Haemoglobin decreased [Unknown]
  - C-reactive protein increased [Unknown]
  - Drug ineffective [Unknown]
  - Vomiting [Unknown]
  - Lymphocyte count increased [Unknown]
  - Red blood cell count decreased [Unknown]
  - Anaphylactic reaction [Unknown]
  - Nausea [Unknown]
  - Pain [Unknown]
  - Red blood cell sedimentation rate increased [Unknown]
  - Wheezing [Unknown]
